FAERS Safety Report 9015973 (Version 1)
Quarter: 2013Q1

REPORT INFORMATION
  Report Type: Report from Study
  Country: CA (occurrence: CA)
  Receive Date: 20130116
  Receipt Date: 20130116
  Transmission Date: 20140127
  Serious: Yes (Other)
  Sender: FDA-Public Use
  Company Number: PHHO2013CA000917

PATIENT
  Age: 89 Year
  Sex: Female

DRUGS (5)
  1. ACLASTA [Suspect]
     Dosage: UNK
     Route: 042
     Dates: start: 2009
  2. ACLASTA [Suspect]
     Dosage: UNK
     Route: 042
     Dates: start: 2010
  3. CALCIUM [Concomitant]
     Dosage: 500 MG, BID
     Dates: start: 2006
  4. CALCIUM [Concomitant]
     Dosage: 500 MG, QD
     Dates: start: 20111003
  5. VIT D [Concomitant]
     Dosage: 400 MG, BID
     Dates: start: 2006

REACTIONS (1)
  - Pelvic fracture [Recovered/Resolved]
